FAERS Safety Report 7455557-3 (Version None)
Quarter: 2011Q2

REPORT INFORMATION
  Report Type: 
  Country: None (occurrence: None)
  Receive Date: 20110503
  Receipt Date: 20110421
  Transmission Date: 20111010
  Serious: Yes (Hospitalization)
  Sender: FDA-Public Use
  Company Number: US-BAYER-201021175NA

PATIENT
  Age: 40 Year
  Sex: Female
  Weight: 73.469 kg

DRUGS (13)
  1. YAZ [Suspect]
     Dosage: UNK
     Dates: start: 20061101, end: 20080401
  2. FLUOXETINE [Concomitant]
     Indication: PREMENSTRUAL SYNDROME
     Dosage: UNK
     Dates: start: 20080101
  3. CLARITIN [Concomitant]
  4. YAZ [Suspect]
     Indication: PREMENSTRUAL SYNDROME
     Dosage: AS USED DOSE: UNK
     Route: 048
     Dates: start: 20061001, end: 20080501
  5. YASMIN [Suspect]
     Indication: PRODUCT USED FOR UNKNOWN INDICATION
     Dosage: AS USED DOSE: UNK
     Route: 048
     Dates: start: 20061001
  6. IBUPROFEN [Concomitant]
  7. ADVIL LIQUI-GELS [Concomitant]
  8. MOTRIN [Concomitant]
  9. HYDROCODONE BITARTRATE AND ACETAMINOPHEN [Concomitant]
  10. DROSPIRENONE AND ETHINYL ESTRADIOL [Suspect]
     Indication: PRODUCT USED FOR UNKNOWN INDICATION
     Dosage: AS USED DOSE: UNK
     Route: 048
     Dates: start: 20061001
  11. ALBUTEROL [Concomitant]
     Indication: ASTHMA
     Dosage: UNK
     Dates: start: 20000101
  12. ALEVE-D SINUS + COLD [Concomitant]
  13. HERBAL PREPARATION [Concomitant]

REACTIONS (5)
  - PULMONARY EMBOLISM [None]
  - ANXIETY [None]
  - POST-TRAUMATIC STRESS DISORDER [None]
  - DEPRESSION [None]
  - DEEP VEIN THROMBOSIS [None]
